FAERS Safety Report 4563625-9 (Version None)
Quarter: 2005Q1

REPORT INFORMATION
  Report Type: 
  Country: None (occurrence: None)
  Receive Date: 20050128
  Receipt Date: 20041203
  Transmission Date: 20050727
  Serious: Yes (Other)
  Sender: FDA-Public Use
  Company Number: CH-BRISTOL-MYERS SQUIBB COMPANY-12784369

PATIENT
  Age: 60 Year
  Sex: Female

DRUGS (4)
  1. REYATAZ [Suspect]
  2. TRIMETHOPRIM-SULFAMETHOXAZOLE [Suspect]
  3. TENOFOVIR DISOPROXIL FUMARATE [Concomitant]
  4. ABACAVIR [Concomitant]

REACTIONS (2)
  - INFECTION [None]
  - PANCYTOPENIA [None]
